FAERS Safety Report 13601396 (Version 1)
Quarter: 2017Q2

REPORT INFORMATION
  Report Type: Spontaneous
  Country: US (occurrence: US)
  Receive Date: 20170601
  Receipt Date: 20170601
  Transmission Date: 20170830
  Serious: Yes (Disabling)
  Sender: FDA-Public Use
  Company Number: None

PATIENT
  Age: 57 Year
  Sex: Male
  Weight: 83.25 kg

DRUGS (2)
  1. CIPROFLOXACIN. [Suspect]
     Active Substance: CIPROFLOXACIN
     Indication: URINARY TRACT INFECTION
     Route: 048
     Dates: start: 20170221, end: 20170414
  2. LISINIPROL [Concomitant]

REACTIONS (3)
  - Paraesthesia [None]
  - Tendon discomfort [None]
  - Bone pain [None]

NARRATIVE: CASE EVENT DATE: 20170219
